FAERS Safety Report 6044641-7 (Version None)
Quarter: 2009Q1

REPORT INFORMATION
  Report Type: 
  Country: None (occurrence: None)
  Receive Date: 20090120
  Receipt Date: 20090115
  Transmission Date: 20090719
  Serious: Yes (Hospitalization)
  Sender: FDA-Public Use
  Company Number: FR-AMGEN-UK328550

PATIENT
  Sex: Male

DRUGS (8)
  1. VECTIBIX [Suspect]
     Route: 042
     Dates: start: 20081022, end: 20081022
  2. SINTROM [Concomitant]
  3. HEMIGOXINE NATIVELLE [Concomitant]
  4. AVODART [Concomitant]
  5. TAMSULOSIN HCL [Concomitant]
  6. RILMENIDINE [Concomitant]
  7. FORLAX [Concomitant]
  8. XELODA [Concomitant]

REACTIONS (4)
  - ERYTHEMA [None]
  - HYPOACUSIS [None]
  - LIP OEDEMA [None]
  - VISUAL ACUITY REDUCED [None]
